FAERS Safety Report 21571027 (Version 1)
Quarter: 2022Q4

REPORT INFORMATION
  Report Type: Spontaneous
  Country: CN (occurrence: CN)
  Receive Date: 20221109
  Receipt Date: 20221109
  Transmission Date: 20230113
  Serious: Yes (Life-Threatening, Hospitalization)
  Sender: FDA-Public Use
  Company Number: CN-STRIDES ARCOLAB LIMITED-2022SP014587

PATIENT
  Age: 4 Decade
  Sex: Male

DRUGS (1)
  1. PROPAFENONE [Suspect]
     Active Substance: PROPAFENONE
     Indication: Product used for unknown indication
     Dosage: 150 MILLIGRAM; (20 TABLETS)
     Route: 048

REACTIONS (14)
  - Suicide attempt [Unknown]
  - Altered state of consciousness [Recovered/Resolved]
  - Atrioventricular block first degree [Recovered/Resolved]
  - Supraventricular extrasystoles [Recovered/Resolved]
  - Sinus arrest [Recovered/Resolved]
  - Ventricular asystole [Recovered/Resolved]
  - Hypotension [Recovered/Resolved]
  - Atrioventricular block [Recovered/Resolved]
  - Electrocardiogram QT prolonged [Recovered/Resolved]
  - Seizure [Recovered/Resolved]
  - Syncope [Recovered/Resolved]
  - Ventricular arrhythmia [Recovered/Resolved]
  - Toxicity to various agents [Recovered/Resolved]
  - Intentional overdose [Unknown]
